FAERS Safety Report 13760905 (Version 1)
Quarter: 2017Q3

REPORT INFORMATION
  Report Type: Spontaneous
  Country: US (occurrence: US)
  Receive Date: 20170717
  Receipt Date: 20170717
  Transmission Date: 20171127
  Serious: No
  Sender: FDA-Public Use
  Company Number: US-ALLERGAN-1680693US

PATIENT
  Age: 70 Year
  Sex: Male
  Weight: 81.18 kg

DRUGS (4)
  1. NAMENDA XR [Suspect]
     Active Substance: MEMANTINE HYDROCHLORIDE
     Indication: COGNITIVE DISORDER
     Dosage: 7 MG, QD
     Route: 048
     Dates: start: 20161104
  2. ROSUVASTATIN. [Concomitant]
     Active Substance: ROSUVASTATIN
     Indication: AMNESIA
     Dosage: 1 DF, UNK
     Route: 048
     Dates: start: 20161207
  3. FENOFIBRATE. [Concomitant]
     Active Substance: FENOFIBRATE
     Indication: AMNESIA
     Dosage: 1 DF, QD
     Route: 048
     Dates: start: 20161116
  4. BUPROPION HCL [Concomitant]
     Active Substance: BUPROPION HYDROCHLORIDE
     Indication: AMNESIA
     Dosage: 1 DF, QAM
     Route: 048
     Dates: start: 20160803

REACTIONS (4)
  - Head discomfort [Not Recovered/Not Resolved]
  - Off label use [Unknown]
  - Headache [Not Recovered/Not Resolved]
  - Dizziness [Not Recovered/Not Resolved]

NARRATIVE: CASE EVENT DATE: 201611
